FAERS Safety Report 19100630 (Version 1)
Quarter: 2021Q2

REPORT INFORMATION
  Report Type: Spontaneous
  Country: US (occurrence: US)
  Receive Date: 20210407
  Receipt Date: 20210407
  Transmission Date: 20210717
  Serious: Yes (Other)
  Sender: FDA-Public Use
  Company Number: US-ABBVIE-21K-163-3848699-00

PATIENT
  Age: 64 Year
  Sex: Male

DRUGS (1)
  1. HUMIRA [Suspect]
     Active Substance: ADALIMUMAB
     Indication: RHEUMATOID ARTHRITIS
     Route: 058

REACTIONS (6)
  - Lymph gland infection [Unknown]
  - Surgery [Unknown]
  - Wrong technique in product usage process [Recovered/Resolved]
  - Swelling face [Unknown]
  - Endodontic procedure [Unknown]
  - Expired product administered [Unknown]

NARRATIVE: CASE EVENT DATE: 20210401
